FAERS Safety Report 8510022 (Version 3)
Quarter: 2014Q4

REPORT INFORMATION
  Report Type: Spontaneous
  Country: FR (occurrence: FR)
  Receive Date: 20120413
  Receipt Date: 20141125
  Transmission Date: 20150529
  Serious: Yes (Disabling, Other)
  Sender: FDA-Public Use
  Company Number: FR-BAYER-2012-018185

PATIENT
  Age: 41 Year
  Sex: Female
  Weight: 65 kg

DRUGS (2)
  1. QLAIRA [Suspect]
     Active Substance: DIENOGEST\ESTRADIOL VALERATE
     Indication: CONTRACEPTION
     Dosage: 1 DF, QD
     Route: 048
     Dates: start: 20100702, end: 20120210
  2. QLAIRA [Suspect]
     Active Substance: DIENOGEST\ESTRADIOL VALERATE
     Indication: CONTRACEPTION
     Dosage: 1 DF, QD
     Route: 048
     Dates: start: 20110215, end: 20120217

REACTIONS (14)
  - Ischaemic stroke [Recovered/Resolved with Sequelae]
  - Mental disorder [None]
  - Cerebrovascular accident [None]
  - Vestibular nystagmus [None]
  - Cerebellar syndrome [Recovered/Resolved with Sequelae]
  - Dizziness [Recovered/Resolved with Sequelae]
  - Depression [None]
  - Vomiting [Recovered/Resolved with Sequelae]
  - Acute vestibular syndrome [None]
  - Vestibular disorder [None]
  - Headache [Recovered/Resolved with Sequelae]
  - Fatigue [Recovered/Resolved with Sequelae]
  - Vertigo [Recovered/Resolved with Sequelae]
  - Vestibular neuronitis [None]

NARRATIVE: CASE EVENT DATE: 20111115
